FAERS Safety Report 10683542 (Version 2)
Quarter: 2015Q1

REPORT INFORMATION
  Report Type: Report from Study
  Country: CN (occurrence: CN)
  Receive Date: 20141230
  Receipt Date: 20150128
  Transmission Date: 20150720
  Serious: Yes (Death, Other)
  Sender: FDA-Public Use
  Company Number: CN-ASTELLAS-2014US021489

PATIENT
  Age: 50 Year
  Sex: Female
  Weight: 55 kg

DRUGS (9)
  1. ATG-FRESENIUS [Suspect]
     Active Substance: LAPINE T-LYMPHOCYTE IMMUNE GLOBULIN
     Indication: RENAL TRANSPLANT
     Dosage: 385 MG ONCE
     Route: 042
     Dates: start: 20141219, end: 20141219
  2. TACROLIMUS. [Suspect]
     Active Substance: TACROLIMUS
     Indication: RENAL TRANSPLANT
     Route: 050
     Dates: start: 20141222, end: 20141222
  3. MYFORTIC [Suspect]
     Active Substance: MYCOPHENOLATE SODIUM
     Indication: RENAL TRANSPLANT
     Route: 050
     Dates: start: 20141222, end: 20141222
  4. POLYSACCHARIDE-IRON COMPLEX [Concomitant]
     Indication: ANAEMIA
     Dosage: 0.3 G, ONCE DAILY
     Route: 048
  5. METHYLPREDNISOLONE                 /00049602/ [Suspect]
     Active Substance: METHYLPREDNISOLONE
     Route: 042
     Dates: start: 20141222, end: 20141222
  6. CAPTOPRIL. [Concomitant]
     Active Substance: CAPTOPRIL
     Indication: HYPERTENSION
     Route: 048
  7. METOPROLOL [Concomitant]
     Active Substance: METOPROLOL
     Indication: HYPERTENSION
     Route: 048
  8. ERYTHROPOIETIN HUMAN [Concomitant]
     Indication: ANAEMIA
     Route: 050
  9. METHYLPREDNISOLONE                 /00049602/ [Suspect]
     Active Substance: METHYLPREDNISOLONE
     Indication: RENAL TRANSPLANT
     Route: 042
     Dates: start: 20141221, end: 20141221

REACTIONS (2)
  - Respiratory failure [Fatal]
  - Multi-organ failure [Fatal]

NARRATIVE: CASE EVENT DATE: 20141222
